FAERS Safety Report 20775301 (Version 2)
Quarter: 2022Q3

REPORT INFORMATION
  Report Type: Spontaneous
  Country: CA (occurrence: CA)
  Receive Date: 20220502
  Receipt Date: 20220801
  Transmission Date: 20221027
  Serious: Yes (Other)
  Sender: FDA-Public Use
  Company Number: CA-002147023-NVSC2022CA093304

PATIENT

DRUGS (5)
  1. RUXOLITINIB [Suspect]
     Active Substance: RUXOLITINIB
     Indication: Polycythaemia vera
     Dosage: 10 MG, BID
     Route: 048
     Dates: start: 201509, end: 20211122
  2. RUXOLITINIB [Suspect]
     Active Substance: RUXOLITINIB
     Dosage: 15 MG (10 MG IN MORNING AND 5 MG EVENING)
     Route: 048
     Dates: start: 202106
  3. RUXOLITINIB [Suspect]
     Active Substance: RUXOLITINIB
     Dosage: 5 MG, BID
     Route: 048
     Dates: start: 202111
  4. ASPIRIN [Concomitant]
     Active Substance: ASPIRIN
     Indication: Product used for unknown indication
     Dosage: 81 MG, QD
     Route: 065
  5. PROLIA [Concomitant]
     Active Substance: DENOSUMAB
     Indication: Product used for unknown indication
     Dosage: UNK (6 MONTH STARTED PRIOR TO 2015)
     Route: 065

REACTIONS (4)
  - Metastases to lymph nodes [Unknown]
  - Metastases to lung [Unknown]
  - Anal squamous cell carcinoma [Not Recovered/Not Resolved]
  - Second primary malignancy [Unknown]

NARRATIVE: CASE EVENT DATE: 20211101
